FAERS Safety Report 11004068 (Version 3)
Quarter: 2016Q2

REPORT INFORMATION
  Report Type: Spontaneous
  Country: US (occurrence: US)
  Receive Date: 20150409
  Receipt Date: 20160512
  Transmission Date: 20160815
  Serious: Yes (Death)
  Sender: FDA-Public Use
  Company Number: US-JNJFOC-20150401052

PATIENT
  Age: 58 Year
  Sex: Female

DRUGS (3)
  1. RISPERIDONE. [Suspect]
     Active Substance: RISPERIDONE
     Indication: PRODUCT USED FOR UNKNOWN INDICATION
     Route: 048
     Dates: start: 20140204
  2. EFFEXOR [Interacting]
     Active Substance: VENLAFAXINE HYDROCHLORIDE
     Indication: DEPRESSION
     Route: 065
  3. XANAX [Interacting]
     Active Substance: ALPRAZOLAM
     Indication: DEPRESSION
     Route: 065

REACTIONS (4)
  - Drug interaction [Unknown]
  - Abnormal behaviour [Recovered/Resolved]
  - Completed suicide [Fatal]
  - Memory impairment [Recovered/Resolved]

NARRATIVE: CASE EVENT DATE: 2014
